FAERS Safety Report 19070711 (Version 1)
Quarter: 2021Q1

REPORT INFORMATION
  Report Type: Spontaneous
  Country: JP (occurrence: JP)
  Receive Date: 20210330
  Receipt Date: 20210330
  Transmission Date: 20210420
  Serious: Yes (Death, Hospitalization, Other)
  Sender: FDA-Public Use
  Company Number: JP-009507513-2101JPN001544J

PATIENT
  Age: 82 Year
  Sex: Female
  Weight: 38 kg

DRUGS (5)
  1. KEYTRUDA [Suspect]
     Active Substance: PEMBROLIZUMAB
     Indication: TRANSITIONAL CELL CANCER OF THE RENAL PELVIS AND URETER
     Dosage: 200 MILLIGRAM, Q3W
     Route: 041
     Dates: start: 20201125, end: 20210106
  2. BONALON:JELLY [Concomitant]
     Dosage: 35 MILLIGRAM, ONCE EVERY 2 WEEKS
     Route: 048
     Dates: start: 202004, end: 202101
  3. BAKTAR [Concomitant]
     Active Substance: SULFAMETHOXAZOLE\TRIMETHOPRIM
     Dosage: 1 DOSAGE FORM, TWICE EVERY 2 WEEKS
     Route: 048
     Dates: start: 20200216, end: 202101
  4. LANSOPRAZOLE. [Concomitant]
     Active Substance: LANSOPRAZOLE
     Dosage: 15 MILLIGRAM
     Route: 048
     Dates: start: 20161124, end: 202101
  5. PREDONINE [Concomitant]
     Active Substance: PREDNISOLONE
     Indication: IMMUNE THROMBOCYTOPENIA
     Dosage: 15 MILLIGRAM
     Route: 048
     Dates: start: 20161118, end: 202101

REACTIONS (8)
  - Disseminated intravascular coagulation [Unknown]
  - Muscular weakness [Unknown]
  - Depressed level of consciousness [Unknown]
  - Blood pressure decreased [Unknown]
  - Malaise [Unknown]
  - Immune-mediated myositis [Not Recovered/Not Resolved]
  - Platelet count decreased [Unknown]
  - Malignant neoplasm progression [Fatal]

NARRATIVE: CASE EVENT DATE: 20210106
